FAERS Safety Report 5412829-1 (Version None)
Quarter: 2007Q3

REPORT INFORMATION
  Report Type: 
  Country: None (occurrence: None)
  Receive Date: 20070713
  Receipt Date: 20070509
  Transmission Date: 20080115
  Serious: No
  Sender: FDA-Public Use
  Company Number: 2007SP001711

PATIENT
  Age: 78 Year
  Sex: Female
  Weight: 68.0396 kg

DRUGS (9)
  1. LUNESTA [Suspect]
     Indication: INSOMNIA
     Dosage: 3 MG; ORAL , 2 MG; ORAL, 3 MG; ORAL , 1.5 MG;QOD;ORAL
     Route: 048
     Dates: start: 20060101
  2. LUNESTA [Suspect]
     Indication: INSOMNIA
     Dosage: 3 MG; ORAL , 2 MG; ORAL, 3 MG; ORAL , 1.5 MG;QOD;ORAL
     Route: 048
     Dates: start: 20070502
  3. AVAPRO [Concomitant]
  4. TOPROL-XL [Concomitant]
  5. FISH OIL [Concomitant]
  6. THYROID THERAPY [Concomitant]
  7. CALCIUM [Concomitant]
  8. GLUCOSAMINE [Concomitant]
  9. ARTIFICIAL TEARS [Concomitant]

REACTIONS (7)
  - ASTHENOPIA [None]
  - EYE DISORDER [None]
  - FEELING ABNORMAL [None]
  - INSOMNIA [None]
  - SOMNOLENCE [None]
  - VISUAL ACUITY REDUCED [None]
  - VISUAL DISTURBANCE [None]
